FAERS Safety Report 7355258-6 (Version None)
Quarter: 2011Q1

REPORT INFORMATION
  Report Type: 
  Country: None (occurrence: None)
  Receive Date: 20110316
  Receipt Date: 20110315
  Transmission Date: 20110831
  Serious: Yes (Hospitalization)
  Sender: FDA-Public Use
  Company Number: FR-PFIZER INC-2011056450

PATIENT
  Age: 42 Year
  Sex: Female

DRUGS (15)
  1. GAVISCON [Suspect]
     Indication: GASTRITIS
     Dosage: UNK
     Route: 048
     Dates: start: 20101207, end: 20110106
  2. MIOREL [Concomitant]
     Dosage: UNK
     Dates: start: 20101112, end: 20101126
  3. HELICIDINE [Concomitant]
     Dosage: UNK
     Dates: start: 20101229
  4. STRESAM [Suspect]
     Dosage: UNK
     Route: 048
     Dates: end: 20110106
  5. RHINOFLUIMUCIL [Suspect]
     Indication: BRONCHITIS
     Dosage: UNK
     Dates: start: 20101229
  6. ACETAMINOPHEN [Concomitant]
     Dosage: UNK
     Dates: start: 20101229
  7. SERETIDE [Concomitant]
     Dosage: UNK
  8. OMEPRAZOLE [Concomitant]
     Dosage: UNK
     Dates: start: 20101112, end: 20101126
  9. LEVOTHYROX [Concomitant]
     Dosage: UNK
  10. ORELOX [Suspect]
     Indication: BRONCHITIS
     Dosage: UNK
     Route: 048
     Dates: start: 20101229, end: 20110102
  11. LEXOMIL [Concomitant]
     Dosage: UNK
  12. PROFENID [Concomitant]
     Dosage: UNK
     Dates: start: 20101112, end: 20101126
  13. METEOSPASMYL [Suspect]
     Indication: GASTRITIS
     Dosage: UNK
     Route: 048
     Dates: start: 20101207, end: 20110106
  14. ESOMEPRAZOLE MAGNESIUM [Suspect]
     Indication: GASTRITIS
     Dosage: UNK
     Route: 048
     Dates: start: 20101207, end: 20110106
  15. DOMPERIDONE [Concomitant]
     Dosage: UNK
     Dates: start: 20101207

REACTIONS (2)
  - TRANSAMINASES INCREASED [None]
  - GAMMA-GLUTAMYLTRANSFERASE INCREASED [None]
